FAERS Safety Report 14972881 (Version 1)
Quarter: 2018Q2

REPORT INFORMATION
  Report Type: Spontaneous
  Country: US (occurrence: US)
  Receive Date: 20180605
  Receipt Date: 20180605
  Transmission Date: 20180711
  Serious: No
  Sender: FDA-Public Use
  Company Number: US-BAYER-2018-100470

PATIENT
  Age: 40 Year
  Sex: Male
  Weight: 72.97 kg

DRUGS (6)
  1. NAPROXEN. [Concomitant]
     Active Substance: NAPROXEN
     Dosage: 500 MG, BID
  2. CLARITIN-D 24 HOUR [Suspect]
     Active Substance: LORATADINE\PSEUDOEPHEDRINE SULFATE
     Indication: HYPERSENSITIVITY
     Dosage: 1 DF, UNK
     Route: 048
     Dates: start: 20180522, end: 20180522
  3. CLARITIN [Suspect]
     Active Substance: LORATADINE
     Indication: HYPERSENSITIVITY
     Dosage: 1 DF, BID
     Route: 048
     Dates: start: 201805
  4. CLARITIN-D 24 HOUR [Suspect]
     Active Substance: LORATADINE\PSEUDOEPHEDRINE SULFATE
     Indication: NASOPHARYNGITIS
  5. CLARITIN [Suspect]
     Active Substance: LORATADINE
     Indication: NASOPHARYNGITIS
  6. SYNTHROID [Concomitant]
     Active Substance: LEVOTHYROXINE SODIUM

REACTIONS (4)
  - Insomnia [Recovered/Resolved]
  - Logorrhoea [Recovered/Resolved]
  - Poor quality sleep [Recovered/Resolved]
  - Wrong technique in product usage process [Unknown]

NARRATIVE: CASE EVENT DATE: 201805
